FAERS Safety Report 8561319-6 (Version None)
Quarter: 2012Q3

REPORT INFORMATION
  Report Type: 
  Country: None (occurrence: None)
  Receive Date: 20120802
  Receipt Date: 20120726
  Transmission Date: 20120928
  Serious: Yes (Other)
  Sender: FDA-Public Use
  Company Number: JP-VERTEX PHARMACEUTICALS INC.-AE-2012-007673

PATIENT
  Age: 67 Year
  Sex: Male

DRUGS (13)
  1. TELAVIC (TELAPREVIR) [Suspect]
     Route: 048
     Dates: start: 20120409, end: 20120430
  2. REBETOL [Concomitant]
     Indication: HEPATITIS C
     Route: 048
     Dates: start: 20120403, end: 20120408
  3. PEG-INTRON [Concomitant]
     Indication: HEPATITIS C
     Route: 058
     Dates: start: 20120403, end: 20120417
  4. ADALAT CC [Concomitant]
     Route: 048
  5. TELAVIC (TELAPREVIR) [Suspect]
     Route: 048
     Dates: start: 20120501, end: 20120529
  6. TELAVIC (TELAPREVIR) [Suspect]
     Route: 048
     Dates: start: 20120613
  7. TELAVIC (TELAPREVIR) [Suspect]
     Indication: HEPATITIS C
     Route: 048
     Dates: start: 20120403, end: 20120408
  8. TELAVIC (TELAPREVIR) [Suspect]
     Route: 048
     Dates: start: 20120606, end: 20120612
  9. REBETOL [Concomitant]
     Route: 048
     Dates: start: 20120409, end: 20120424
  10. REBETOL [Concomitant]
     Route: 048
     Dates: start: 20120619
  11. REBETOL [Concomitant]
     Route: 048
     Dates: start: 20120425, end: 20120618
  12. PEG-INTRON [Concomitant]
     Route: 058
     Dates: start: 20120424
  13. OLMESARTAN MEDOXOMIL [Concomitant]
     Route: 048

REACTIONS (1)
  - RENAL IMPAIRMENT [None]
